FAERS Safety Report 7764477-6 (Version None)
Quarter: 2011Q3

REPORT INFORMATION
  Report Type: 
  Country: None (occurrence: None)
  Receive Date: 20110921
  Receipt Date: 20110323
  Transmission Date: 20111222
  Serious: No
  Sender: FDA-Public Use
  Company Number: US-BAYER-2011-027506

PATIENT
  Sex: Male

DRUGS (2)
  1. NAPROSYN [Concomitant]
  2. ALEVE (CAPLET) [Suspect]
     Indication: ARTHRITIS
     Dosage: 1 TAB AS NEEDED - 50 COUNT
     Route: 048
     Dates: start: 20110301, end: 20110301

REACTIONS (1)
  - ARTHRITIS [None]
